FAERS Safety Report 9178727 (Version 1)
Quarter: 2012Q4

REPORT INFORMATION
  Report Type: 
  Country: US (occurrence: US)
  Receive Date: 20121029
  Receipt Date: 20121029
  Transmission Date: 20130627
  Serious: No
  Sender: FDA-Public Use
  Company Number: US-PFIZER INC-2012269999

PATIENT
  Age: 55 Year
  Sex: Male
  Weight: 99.77 kg

DRUGS (6)
  1. CHANTIX [Suspect]
     Indication: SMOKING CESSATION THERAPY
     Dosage: 0.5 mg, daily
     Route: 048
     Dates: start: 20121023, end: 201210
  2. CHANTIX [Suspect]
     Dosage: UNK
     Route: 048
     Dates: start: 201210, end: 201210
  3. CHANTIX [Suspect]
     Dosage: UNK, 2x/day
     Route: 048
     Dates: start: 201210
  4. PLAVIX [Concomitant]
     Indication: HEART DISORDER
     Dosage: UNK
  5. ALBUTEROL [Concomitant]
     Indication: HEART DISORDER
     Dosage: UNK
  6. LISINOPRIL [Concomitant]
     Indication: HEART DISORDER
     Dosage: UNK

REACTIONS (2)
  - Pruritus [Not Recovered/Not Resolved]
  - Inappropriate schedule of drug administration [Unknown]
